FAERS Safety Report 12360597 (Version 1)
Quarter: 2016Q2

REPORT INFORMATION
  Report Type: Spontaneous
  Country: US (occurrence: US)
  Receive Date: 20160512
  Receipt Date: 20160512
  Transmission Date: 20160815
  Serious: Yes (Other)
  Sender: FDA-Public Use
  Company Number: ADR-2015-01224

PATIENT
  Age: 60 Year
  Sex: Female

DRUGS (24)
  1. NIFEDIPINE ER [Suspect]
     Active Substance: NIFEDIPINE
     Route: 048
     Dates: start: 20150127
  2. ATORVASTATIN CALCIUM. [Suspect]
     Active Substance: ATORVASTATIN CALCIUM
     Route: 048
     Dates: start: 20150127
  3. CELEBREX [Suspect]
     Active Substance: CELECOXIB
     Route: 048
     Dates: start: 20150127
  4. MONTELUKAST SODIUM. [Suspect]
     Active Substance: MONTELUKAST SODIUM
     Route: 048
     Dates: start: 20150127
  5. GILENYA [Suspect]
     Active Substance: FINGOLIMOD HYDROCHLORIDE
     Dosage: 0.5MG DAILY
     Route: 048
     Dates: start: 20150127
  6. VITAMIN D3 [Suspect]
     Active Substance: CHOLECALCIFEROL
     Route: 048
  7. LIORESAL [Suspect]
     Active Substance: BACLOFEN
     Dosage: 1049.8MCG/DAY
     Route: 037
  8. NITROFURANTOIN (MACROCRYSTALS) [Suspect]
     Active Substance: NITROFURANTOIN
     Route: 048
     Dates: start: 20150127
  9. CRANBERRY. [Suspect]
     Active Substance: CRANBERRY
     Route: 048
  10. FLAXSEED [Suspect]
     Active Substance: FLAX SEED
     Route: 048
     Dates: start: 20150127
  11. NASACORT ALLERGY 24HR [Suspect]
     Active Substance: TRIAMCINOLONE ACETONIDE
     Dosage: 1 SPRAY EACH NOSTRIL AS NEEDED
     Route: 045
  12. AMITIZA [Suspect]
     Active Substance: LUBIPROSTONE
     Route: 048
  13. ZIPRASIDONE HCL [Suspect]
     Active Substance: ZIPRASIDONE HYDROCHLORIDE
     Route: 048
     Dates: start: 20150127
  14. METOPROLOL TARTRATE. [Suspect]
     Active Substance: METOPROLOL TARTRATE
     Route: 048
     Dates: start: 20150127
  15. LEVAQUIN [Suspect]
     Active Substance: LEVOFLOXACIN
     Route: 048
     Dates: start: 20150316
  16. PAROXETINE HCL [Suspect]
     Active Substance: PAROXETINE HYDROCHLORIDE
     Route: 048
     Dates: start: 20150127
  17. MIRALAX [Suspect]
     Active Substance: POLYETHYLENE GLYCOL 3350
     Dosage: 1 PAK DAILY
     Route: 048
     Dates: start: 20150127
  18. MULTIVITAMIN [Suspect]
     Active Substance: VITAMINS
     Dosage: ONE CAP DAILY
     Route: 048
     Dates: start: 20150127
  19. VITAMIN B12 [Suspect]
     Active Substance: CYANOCOBALAMIN
     Route: 048
     Dates: start: 20150127
  20. ALENDRONATE SODIUM. [Suspect]
     Active Substance: ALENDRONATE SODIUM
     Route: 048
     Dates: start: 20150127
  21. LIORESAL [Suspect]
     Active Substance: BACLOFEN
     Dosage: 96MCG/DAY
     Route: 037
  22. LANSOPRAZOLE. [Suspect]
     Active Substance: LANSOPRAZOLE
     Route: 048
     Dates: start: 20150127
  23. CALCIUM +D3 [Suspect]
     Active Substance: CALCIUM\CHOLECALCIFEROL
     Dosage: ONE TWICE DAILY
     Route: 048
     Dates: start: 20150127
  24. BIOTIN [Suspect]
     Active Substance: BIOTIN
     Route: 048
     Dates: start: 20150127

REACTIONS (6)
  - Therapeutic response decreased [Unknown]
  - Irritability [Unknown]
  - Movement disorder [Unknown]
  - Musculoskeletal stiffness [Unknown]
  - Drug withdrawal syndrome [Unknown]
  - Muscle spasms [Unknown]
